FAERS Safety Report 23809654 (Version 1)
Quarter: 2024Q2

REPORT INFORMATION
  Report Type: Spontaneous
  Country: US (occurrence: US)
  Receive Date: 20240502
  Receipt Date: 20240502
  Transmission Date: 20240716
  Serious: No
  Sender: FDA-Public Use
  Company Number: US-TEVA-VS-3184260

PATIENT
  Sex: Female

DRUGS (1)
  1. AUSTEDO [Suspect]
     Active Substance: DEUTETRABENAZINE
     Indication: Tardive dyskinesia
     Dosage: 6 MILLIGRAM (MG) TABLET IN THE MORNING AND (1) 9 MG TABLET IN THE EVENING.
     Route: 048
     Dates: start: 20240318

REACTIONS (2)
  - Drug ineffective [Unknown]
  - Drug titration error [Unknown]
